FAERS Safety Report 13741540 (Version 2)
Quarter: 2017Q3

REPORT INFORMATION
  Report Type: Spontaneous
  Country: US (occurrence: US)
  Receive Date: 20170711
  Receipt Date: 20170726
  Transmission Date: 20171127
  Serious: Yes (Hospitalization, Other)
  Sender: FDA-Public Use
  Company Number: US-ALEXION PHARMACEUTICALS INC-A201707717

PATIENT
  Sex: Female

DRUGS (1)
  1. STRENSIQ [Suspect]
     Active Substance: ASFOTASE ALFA
     Indication: HYPOPHOSPHATASIA
     Dosage: UNK
     Route: 058

REACTIONS (6)
  - Angina unstable [Recovering/Resolving]
  - Myocardial infarction [Recovering/Resolving]
  - Bloody discharge [Unknown]
  - Artery dissection [Recovering/Resolving]
  - Post procedural haematoma [Unknown]
  - Procedural pain [Unknown]
